FAERS Safety Report 5888036-5 (Version None)
Quarter: 2008Q3

REPORT INFORMATION
  Report Type: 
  Country: None (occurrence: None)
  Receive Date: 20080918
  Receipt Date: 20080911
  Transmission Date: 20090109
  Serious: Yes (Other)
  Sender: FDA-Public Use
  Company Number: US-GENENTECH-265167

PATIENT
  Sex: Female
  Weight: 89.342 kg

DRUGS (1)
  1. XOLAIR [Suspect]
     Indication: ASTHMA
     Dosage: UNK MBQ, UNKNOWN
     Dates: start: 20080225

REACTIONS (1)
  - ANAPHYLACTIC SHOCK [None]
